FAERS Safety Report 24209923 (Version 1)
Quarter: 2024Q3

REPORT INFORMATION
  Report Type: Report from Study
  Country: IT (occurrence: IT)
  Receive Date: 20240814
  Receipt Date: 20240814
  Transmission Date: 20241016
  Serious: Yes (Other)
  Sender: CURIUM PHARMACEUTICALS
  Company Number: IT-CISBIO-2024000508

PATIENT

DRUGS (2)
  1. TECHNETIUM TC-99M ALBUMIN AGGREGATED [Suspect]
     Active Substance: TECHNETIUM TC-99M ALBUMIN AGGREGATED
     Indication: Ventilation/perfusion scan
     Route: 026
  2. TECHNETIUM TC-99M SODIUM PERTECHNETATE [Concomitant]
     Active Substance: TECHNETIUM TC-99M SODIUM PERTECHNETATE
     Indication: Ventilation/perfusion scan
     Route: 026

REACTIONS (3)
  - Pneumothorax [Unknown]
  - Off label use [Recovered/Resolved]
  - Off label use [Recovered/Resolved]
